FAERS Safety Report 13681327 (Version 1)
Quarter: 2017Q2

REPORT INFORMATION
  Report Type: Spontaneous
  Country: US (occurrence: US)
  Receive Date: 20170623
  Receipt Date: 20170623
  Transmission Date: 20170830
  Serious: No
  Sender: FDA-Public Use
  Company Number: US-PFIZER INC-2017273112

PATIENT
  Sex: Female

DRUGS (1)
  1. IBRANCE [Suspect]
     Active Substance: PALBOCICLIB
     Dosage: 100 MG, CYCLIC(QD FOR 21 DAYS FOLLOWED BY 7 DAYS OFF)
     Dates: start: 20170519

REACTIONS (2)
  - White blood cell count decreased [Unknown]
  - Fatigue [Unknown]
